FAERS Safety Report 10275847 (Version 2)
Quarter: 2014Q3

REPORT INFORMATION
  Report Type: Report from Study
  Country: AR (occurrence: AR)
  Receive Date: 20140703
  Receipt Date: 20140703
  Transmission Date: 20150326
  Serious: Yes (Hospitalization, Other)
  Sender: FDA-Public Use
  Company Number: AR-TEVA-477689ISR

PATIENT
  Age: 43 Year
  Sex: Female

DRUGS (3)
  1. QUETIAPINE [Concomitant]
     Active Substance: QUETIAPINE
     Dosage: 800 MILLIGRAM DAILY;
  2. SEQUAX [Suspect]
     Active Substance: CLOZAPINE
     Dosage: 300 MILLIGRAM DAILY;
     Route: 048
     Dates: start: 20111107, end: 20140421
  3. TOPIRAMATE. [Concomitant]
     Active Substance: TOPIRAMATE
     Dosage: 200 MILLIGRAM DAILY;

REACTIONS (4)
  - Neutropenia [Recovered/Resolved]
  - General physical health deterioration [Recovered/Resolved]
  - Platelet count decreased [None]
  - Odynophagia [Recovered/Resolved]

NARRATIVE: CASE EVENT DATE: 20140425
